FAERS Safety Report 23697645 (Version 2)
Quarter: 2025Q2

REPORT INFORMATION
  Report Type: Spontaneous
  Country: US (occurrence: None)
  Receive Date: 20240402
  Receipt Date: 20250516
  Transmission Date: 20250717
  Serious: No
  Sender: INCYTE
  Company Number: US-INCYTE CORPORATION-2024IN002430

PATIENT
  Age: 72 Year
  Weight: 86.168 kg

DRUGS (2)
  1. OPZELURA [Suspect]
     Active Substance: RUXOLITINIB PHOSPHATE
     Indication: Product used for unknown indication
     Dosage: 1.5% CREAM 60GM, BID (APPLY A THIN LAYER TO AFFECTED AREA(S) TWICE DAILY AS DIRECTED)
  2. OPZELURA [Suspect]
     Active Substance: RUXOLITINIB PHOSPHATE
     Dosage: 1.5 PERCENT, BID (APPLY A THIN LAYER TO AFFECTED AREA(S) TWICE DAILY AS DIRECTED)
     Route: 065

REACTIONS (1)
  - Pruritus [Unknown]
